FAERS Safety Report 15370108 (Version 2)
Quarter: 2018Q3

REPORT INFORMATION
  Report Type: Other
  Country: CN (occurrence: CN)
  Receive Date: 20180911
  Receipt Date: 20180912
  Transmission Date: 20181010
  Serious: Yes (Other)
  Sender: FDA-Public Use
  Company Number: CN-ARALEZ PHARMACEUTICALS R+D INC.-2018-ARA-002082

PATIENT
  Sex: Female
  Weight: 56 kg

DRUGS (2)
  1. METOPROLOL SUCCINATE. [Suspect]
     Active Substance: METOPROLOL SUCCINATE
     Dosage: HALF TABLET
     Route: 048
  2. METOPROLOL SUCCINATE. [Suspect]
     Active Substance: METOPROLOL SUCCINATE
     Indication: CARDIAC FAILURE CHRONIC
     Dosage: 23.75 MG, QD
     Route: 048
     Dates: start: 20180604, end: 20180605

REACTIONS (1)
  - Electrocardiogram QT prolonged [Recovering/Resolving]
